FAERS Safety Report 7531915-3 (Version None)
Quarter: 2011Q2

REPORT INFORMATION
  Report Type: 
  Country: None (occurrence: None)
  Receive Date: 20110601
  Receipt Date: 20110524
  Transmission Date: 20111010
  Serious: Yes (Hospitalization)
  Sender: FDA-Public Use
  Company Number: TPA2011A02576

PATIENT
  Sex: Male

DRUGS (4)
  1. EDARBI [Suspect]
     Indication: HYPERTENSION
     Dosage: 80 MG
  2. DIOVAN [Concomitant]
  3. COREG [Concomitant]
  4. ACE INHIBITOR (ACE INHIBITOR NOS) [Concomitant]

REACTIONS (1)
  - HAEMOPTYSIS [None]
